FAERS Safety Report 25276512 (Version 2)
Quarter: 2025Q2

REPORT INFORMATION
  Report Type: Spontaneous
  Country: US (occurrence: US)
  Receive Date: 20250507
  Receipt Date: 20250527
  Transmission Date: 20250716
  Serious: No
  Sender: HETERO
  Company Number: US-HETERO-HET2025US02164

PATIENT

DRUGS (1)
  1. FAMOTIDINE [Suspect]
     Active Substance: FAMOTIDINE
     Indication: Product used for unknown indication
     Route: 065

REACTIONS (1)
  - Product odour abnormal [Unknown]
